FAERS Safety Report 4714591-4 (Version None)
Quarter: 2005Q3

REPORT INFORMATION
  Report Type: 
  Country: None (occurrence: None)
  Receive Date: 20050714
  Receipt Date: 20050714
  Transmission Date: 20060218
  Serious: Yes (Hospitalization)
  Sender: FDA-Public Use
  Company Number: None

PATIENT
  Age: 54 Year
  Sex: Male

DRUGS (1)
  1. IBUPROFEN [Suspect]
     Indication: MUSCLE STRAIN
     Dosage: ORAL; 800.0 MILLIGRAM
     Route: 048
     Dates: start: 20050622, end: 20050622

REACTIONS (3)
  - DRUG HYPERSENSITIVITY [None]
  - HYPERSENSITIVITY [None]
  - PRURITUS [None]
